FAERS Safety Report 7179629-6 (Version None)
Quarter: 2010Q4

REPORT INFORMATION
  Report Type: 
  Country: None (occurrence: None)
  Receive Date: 20101221
  Receipt Date: 20101210
  Transmission Date: 20110411
  Serious: Yes (Hospitalization)
  Sender: FDA-Public Use
  Company Number: US-BAXTER-2010BH028736

PATIENT
  Age: 55 Year
  Sex: Female
  Weight: 49 kg

DRUGS (11)
  1. GAMMAGARD LIQUID [Suspect]
     Indication: MYASTHENIA GRAVIS
     Route: 042
     Dates: start: 20100920
  2. GAMMAGARD LIQUID [Suspect]
     Indication: OFF LABEL USE
     Route: 042
     Dates: start: 20100920
  3. GAMMAGARD LIQUID [Suspect]
     Route: 042
     Dates: start: 20101115, end: 20101116
  4. GAMMAGARD LIQUID [Suspect]
     Route: 042
     Dates: start: 20101115, end: 20101116
  5. MESTINON [Suspect]
     Indication: MYASTHENIA GRAVIS
     Route: 048
  6. ASPIRIN [Concomitant]
     Indication: ANTIPLATELET THERAPY
     Route: 048
  7. LISINOPRIL [Concomitant]
     Indication: BLOOD PRESSURE
     Route: 048
  8. ALBUTEROL [Concomitant]
     Indication: BRONCHIAL DISORDER
     Route: 055
  9. PYRIDOSTIGMINE BROMIDE [Concomitant]
     Indication: MYASTHENIA GRAVIS
     Route: 048
  10. METOPROLOL TARTRATE [Concomitant]
     Indication: BLOOD PRESSURE
     Route: 048
  11. CLOPIDOGREL [Concomitant]
     Indication: ANTIPLATELET THERAPY
     Route: 048

REACTIONS (4)
  - ABASIA [None]
  - ACUTE MYOCARDIAL INFARCTION [None]
  - ASTHENIA [None]
  - FATIGUE [None]
